FAERS Safety Report 10021628 (Version 1)
Quarter: 2014Q1

REPORT INFORMATION
  Report Type: Spontaneous
  Country: US (occurrence: US)
  Receive Date: 20140319
  Receipt Date: 20140319
  Transmission Date: 20141002
  Serious: No
  Sender: FDA-Public Use
  Company Number: US-TEVA-387809USA

PATIENT
  Age: 75 Year
  Sex: Male

DRUGS (1)
  1. FLUOCINONIDE [Suspect]
     Indication: ORAL HERPES
     Dates: start: 201302

REACTIONS (2)
  - Pain [Recovering/Resolving]
  - Drug prescribing error [Unknown]
